FAERS Safety Report 10143207 (Version 1)
Quarter: 2014Q2

REPORT INFORMATION
  Report Type: Spontaneous
  Country: AU (occurrence: None)
  Receive Date: 20140428
  Receipt Date: 20140428
  Transmission Date: 20141212
  Serious: Yes (Hospitalization)
  Sender: FDA-Public Use
  Company Number: B0988715A

PATIENT
  Age: 36 Year
  Sex: Female

DRUGS (7)
  1. AMOX. TRIHYD+POT.CLAVULAN. (FORMULATION UNKNOWN) (GENERIC) (AMOX.TRIHYD+POT.CLAVULAN.) [Suspect]
     Indication: PNEUMONIA MYCOPLASMAL
     Route: 048
  2. CEFUROXIME SODIUM [Suspect]
     Indication: PNEUMONIA MYCOPLASMAL
     Route: 042
  3. CLARITHROMYCIN (CLARITHROMYCIN) [Suspect]
     Indication: PNEUMONIA MYCOPLASMAL
     Route: 048
  4. ACETYLCYSTEINE [Suspect]
     Indication: PNEUMONIA MYCOPLASMAL
     Route: 048
  5. DICLOFENAC (DICLOFENAC) [Suspect]
     Indication: PNEUMONIA MYCOPLASMAL
  6. DIPYRONE [Suspect]
     Indication: PNEUMONIA MYCOPLASMAL
     Route: 042
  7. PARACETAMOL [Suspect]
     Indication: PNEUMONIA MYCOPLASMAL
     Route: 042

REACTIONS (1)
  - Stevens-Johnson syndrome [None]
